APPROVED DRUG PRODUCT: CHLORDIAZEPOXIDE AND AMITRIPTYLINE HYDROCHLORIDE
Active Ingredient: AMITRIPTYLINE HYDROCHLORIDE; CHLORDIAZEPOXIDE
Strength: EQ 25MG BASE;10MG
Dosage Form/Route: TABLET;ORAL
Application: A070766 | Product #001
Applicant: TP ANDA HOLDINGS LLC
Approved: Dec 10, 1986 | RLD: No | RS: No | Type: DISCN